FAERS Safety Report 11895798 (Version 1)
Quarter: 2016Q1

REPORT INFORMATION
  Report Type: Spontaneous
  Country: FR (occurrence: FR)
  Receive Date: 20160107
  Receipt Date: 20160107
  Transmission Date: 20160526
  Serious: Yes (Hospitalization, Congenital Anomaly, Other)
  Sender: FDA-Public Use
  Company Number: FR-BRISTOL-MYERS SQUIBB COMPANY-10974715

PATIENT
  Age: 0 Day
  Sex: Female
  Weight: 2.67 kg

DRUGS (4)
  1. VIDEX [Suspect]
     Active Substance: DIDANOSINE
     Indication: ANTIRETROVIRAL THERAPY
     Dosage: 3.8 MG, QD
     Route: 048
     Dates: start: 20000713, end: 20000808
  2. ZERIT [Suspect]
     Active Substance: STAVUDINE
     Indication: ANTIRETROVIRAL THERAPY
     Dosage: 5.4 MG, QD
     Route: 048
     Dates: start: 20000713, end: 20000825
  3. VIDEX [Suspect]
     Active Substance: DIDANOSINE
     Indication: ANTIRETROVIRAL THERAPY
     Route: 064
  4. ZERIT [Suspect]
     Active Substance: STAVUDINE
     Indication: ANTIRETROVIRAL THERAPY
     Route: 064

REACTIONS (7)
  - Blood lactic acid increased [Recovered/Resolved with Sequelae]
  - Foetal exposure during pregnancy [Unknown]
  - Neutropenia [Recovered/Resolved with Sequelae]
  - Talipes [Recovered/Resolved with Sequelae]
  - Hypotonia [Recovered/Resolved with Sequelae]
  - Hypertriglyceridaemia [Recovered/Resolved with Sequelae]
  - Platelet count increased [Recovering/Resolving]

NARRATIVE: CASE EVENT DATE: 20000713
